FAERS Safety Report 23898373 (Version 2)
Quarter: 2024Q3

REPORT INFORMATION
  Report Type: Report from Study
  Country: US (occurrence: US)
  Receive Date: 20240524
  Receipt Date: 20240924
  Transmission Date: 20241017
  Serious: Yes (Other)
  Sender: ABBVIE
  Company Number: US-ABBVIE-5731860

PATIENT
  Age: 76 Year
  Sex: Male

DRUGS (1)
  1. SKYRIZI [Suspect]
     Active Substance: RISANKIZUMAB-RZAA
     Indication: Psoriasis
     Route: 058
     Dates: start: 20240104

REACTIONS (4)
  - Syncope [Not Recovered/Not Resolved]
  - Hypertension [Not Recovered/Not Resolved]
  - Somnolence [Not Recovered/Not Resolved]
  - Vascular occlusion [Not Recovered/Not Resolved]

NARRATIVE: CASE EVENT DATE: 20240201
